FAERS Safety Report 16782624 (Version 4)
Quarter: 2019Q3

REPORT INFORMATION
  Report Type: Report from Study
  Country: US (occurrence: US)
  Receive Date: 20190906
  Receipt Date: 20190930
  Transmission Date: 20191005
  Serious: Yes (Hospitalization)
  Sender: FDA-Public Use
  Company Number: US-ACTELION-A-NJ2018-176013

PATIENT
  Sex: Female
  Weight: 61.22 kg

DRUGS (4)
  1. TRACLEER [Suspect]
     Active Substance: BOSENTAN
     Indication: PULMONARY HYPERTENSION
     Dosage: 125 MG, BID
     Route: 048
     Dates: start: 20141118
  2. VELETRI [Suspect]
     Active Substance: EPOPROSTENOL
     Dosage: 17 NG/KG, PER MIN
     Route: 042
  3. VELETRI [Suspect]
     Active Substance: EPOPROSTENOL
     Indication: PULMONARY HYPERTENSION
     Dosage: 27 NG/KG, PER MIN
     Route: 042
  4. VELETRI [Suspect]
     Active Substance: EPOPROSTENOL
     Dosage: 50 NG/KG, PER MIN
     Route: 042

REACTIONS (16)
  - Cardiac failure congestive [Unknown]
  - Therapeutic product ineffective [Unknown]
  - Hypoxia [Unknown]
  - Diarrhoea [Not Recovered/Not Resolved]
  - Catheter site pruritus [Unknown]
  - Catheter removal [Unknown]
  - Pyrexia [Unknown]
  - Pulmonary hypertension [Unknown]
  - Dyspnoea exertional [Not Recovered/Not Resolved]
  - Headache [Unknown]
  - Condition aggravated [Unknown]
  - Device dislocation [Unknown]
  - Dyspnoea [Unknown]
  - Fluid retention [Unknown]
  - Pain in jaw [Unknown]
  - Weight decreased [Unknown]
